FAERS Safety Report 15552062 (Version 1)
Quarter: 2018Q4

REPORT INFORMATION
  Report Type: Spontaneous
  Country: JP (occurrence: JP)
  Receive Date: 20181025
  Receipt Date: 20181025
  Transmission Date: 20190205
  Serious: Yes (Hospitalization)
  Sender: FDA-Public Use
  Company Number: JP-ASTRAZENECA-2018SF23150

PATIENT
  Age: 23948 Day
  Sex: Female
  Weight: 39 kg

DRUGS (5)
  1. TAGRISSO [Suspect]
     Active Substance: OSIMERTINIB
     Indication: NON-SMALL CELL LUNG CANCER
     Route: 048
     Dates: start: 20180926
  2. TAGRISSO [Suspect]
     Active Substance: OSIMERTINIB
     Indication: NON-SMALL CELL LUNG CANCER
     Route: 048
     Dates: start: 20180917, end: 20180920
  3. SULBACILLIN [Suspect]
     Active Substance: AMPICILLIN SODIUM\SULBACTAM SODIUM
     Indication: INFECTIOUS PLEURAL EFFUSION
     Route: 041
     Dates: start: 20180907, end: 20180918
  4. TAGRISSO [Suspect]
     Active Substance: OSIMERTINIB
     Indication: NON-SMALL CELL LUNG CANCER
     Route: 048
     Dates: start: 20180830, end: 20180907
  5. AMPICILLIN [Suspect]
     Active Substance: AMPICILLIN
     Dosage: DOSE UNKNOWN
     Route: 065
     Dates: start: 20180907

REACTIONS (3)
  - Infectious pleural effusion [Not Recovered/Not Resolved]
  - Pneumatosis intestinalis [Recovering/Resolving]
  - Drug eruption [Recovered/Resolved]

NARRATIVE: CASE EVENT DATE: 20180907
